FAERS Safety Report 11687350 (Version 1)
Quarter: 2015Q4

REPORT INFORMATION
  Report Type: Spontaneous
  Country: US (occurrence: US)
  Receive Date: 20151030
  Receipt Date: 20151030
  Transmission Date: 20160304
  Serious: No
  Sender: FDA-Public Use
  Company Number: US-CAREFUSION 213 LLC-1043604

PATIENT
  Age: 30 Year
  Sex: Female

DRUGS (1)
  1. CHLORAPREP ONE-STEP SEPP [Suspect]
     Active Substance: CHLORHEXIDINE GLUCONATE\ISOPROPYL ALCOHOL
     Indication: PREOPERATIVE CARE
     Route: 061
     Dates: start: 20150525, end: 20150525

REACTIONS (3)
  - Wound [Recovered/Resolved]
  - Application site haemorrhage [Recovered/Resolved]
  - Occupational exposure to product [Recovered/Resolved]

NARRATIVE: CASE EVENT DATE: 20150525
